FAERS Safety Report 8588364-9 (Version None)
Quarter: 2012Q3

REPORT INFORMATION
  Report Type: 
  Country: None (occurrence: None)
  Receive Date: 20120813
  Receipt Date: 20120806
  Transmission Date: 20120928
  Serious: Yes (Death)
  Sender: FDA-Public Use
  Company Number: DE-009507513-1208DEU003585

PATIENT

DRUGS (5)
  1. ARLEVERT [Concomitant]
     Indication: DIZZINESS
     Dosage: 1-1-1
     Route: 048
  2. PANTOPRAZOLE [Concomitant]
     Dosage: 40 MG, QD
     Route: 048
  3. TEMODAL [Suspect]
     Indication: GLIOBLASTOMA MULTIFORME
     Dosage: 390 MG, QD
     Route: 048
     Dates: start: 20120314, end: 20120315
  4. NAVOBAN [Concomitant]
     Indication: GLIOBLASTOMA MULTIFORME
     Dosage: 5 MG, QD
     Route: 048
     Dates: start: 20120314, end: 20120315
  5. DEXAMETHASONE [Concomitant]
     Indication: GLIOBLASTOMA MULTIFORME
     Dosage: 0.5 MG, UNK
     Route: 048

REACTIONS (3)
  - RESPIRATORY FAILURE [None]
  - ALVEOLITIS [None]
  - PNEUMONIA PRIMARY ATYPICAL [None]
